FAERS Safety Report 6062753-9 (Version None)
Quarter: 2009Q1

REPORT INFORMATION
  Report Type: 
  Country: None (occurrence: None)
  Receive Date: 20090203
  Receipt Date: 20090128
  Transmission Date: 20090719
  Serious: Yes (Hospitalization)
  Sender: FDA-Public Use
  Company Number: US-ABBOTT-09P-163-0500745-00

PATIENT
  Sex: Female
  Weight: 72.64 kg

DRUGS (5)
  1. HUMIRA [Suspect]
     Indication: CROHN'S DISEASE
     Dates: start: 20070101, end: 20080801
  2. HUMIRA [Suspect]
     Indication: ARTHRITIS ENTEROPATHIC
     Dosage: 80 MG LOADING DOSE
     Dates: start: 20081111, end: 20081111
  3. HUMIRA [Suspect]
     Dates: start: 20081111, end: 20081225
  4. HUMIRA [Suspect]
     Dates: start: 20081225, end: 20090121
  5. HUMIRA [Suspect]
     Dates: start: 20090121

REACTIONS (8)
  - ARTHRALGIA [None]
  - CROHN'S DISEASE [None]
  - DRUG INEFFECTIVE [None]
  - HYPOTENSION [None]
  - IMMUNOSUPPRESSION [None]
  - MENINGITIS VIRAL [None]
  - RHEUMATOID ARTHRITIS [None]
  - SEPSIS [None]
